FAERS Safety Report 20579339 (Version 1)
Quarter: 2022Q1

REPORT INFORMATION
  Report Type: Spontaneous
  Country: ZA (occurrence: ZA)
  Receive Date: 20220310
  Receipt Date: 20220310
  Transmission Date: 20220423
  Serious: Yes (Other)
  Sender: FDA-Public Use
  Company Number: ZA-NOVARTISPH-NVSC2022ZA054643

PATIENT
  Sex: Female

DRUGS (1)
  1. RIBOCICLIB [Suspect]
     Active Substance: RIBOCICLIB
     Indication: Breast cancer
     Dosage: 200 MG, QD
     Route: 048
     Dates: start: 20190601

REACTIONS (2)
  - Glomerular filtration rate decreased [Not Recovered/Not Resolved]
  - Creatinine renal clearance decreased [Not Recovered/Not Resolved]
